FAERS Safety Report 6988471-8 (Version None)
Quarter: 2010Q3

REPORT INFORMATION
  Report Type: 
  Country: None (occurrence: None)
  Receive Date: 20100827
  Receipt Date: 20100329
  Transmission Date: 20110219
  Serious: Yes (Other)
  Sender: FDA-Public Use
  Company Number: 2010040687

PATIENT
  Sex: Female

DRUGS (1)
  1. VFEND [Suspect]

REACTIONS (4)
  - ANXIETY [None]
  - DYSPNOEA [None]
  - HYPERHIDROSIS [None]
  - TREMOR [None]
